FAERS Safety Report 5318002-X (Version None)
Quarter: 2007Q2

REPORT INFORMATION
  Report Type: 
  Country: None (occurrence: None)
  Receive Date: 20070507
  Receipt Date: 20070504
  Transmission Date: 20071010
  Serious: Yes (Other)
  Sender: FDA-Public Use
  Company Number: IN-BRISTOL-MYERS SQUIBB COMPANY-13770367

PATIENT
  Age: 7 Year
  Sex: Male

DRUGS (3)
  1. MITOMYCIN-C BULK POWDER [Suspect]
     Indication: DEVELOPMENTAL GLAUCOMA
     Route: 057
  2. TIMOLOL MALEATE [Concomitant]
     Indication: DEVELOPMENTAL GLAUCOMA
     Route: 047
  3. GENERAL ANESTHESIA [Concomitant]
     Indication: TRABECULECTOMY

REACTIONS (2)
  - MACULAR HOLE [None]
  - RETINAL HAEMORRHAGE [None]
